FAERS Safety Report 7518651-4 (Version None)
Quarter: 2011Q2

REPORT INFORMATION
  Report Type: 
  Country: None (occurrence: None)
  Receive Date: 20110512
  Receipt Date: 20110406
  Transmission Date: 20111010
  Serious: No
  Sender: FDA-Public Use
  Company Number: 1000019915

PATIENT
  Age: 64 Year
  Sex: Female

DRUGS (14)
  1. SAVELLA [Suspect]
     Indication: OSTEOARTHRITIS
     Dosage: 12.5 MG (12.5 MG, 1 IN 1 D), ORAL 25 (12.5 MG, 2 IN 1 D), ORAL
     Route: 048
     Dates: start: 20110403, end: 20110403
  2. SAVELLA [Suspect]
     Indication: OSTEOARTHRITIS
     Dosage: 12.5 MG (12.5 MG, 1 IN 1 D), ORAL 25 (12.5 MG, 2 IN 1 D), ORAL
     Route: 048
     Dates: start: 20110404, end: 20110405
  3. ZONEGRAN [Suspect]
     Indication: OSTEOARTHRITIS
     Dosage: 100MG (100MG, 1 IN 1 D), ORAL
     Route: 048
     Dates: start: 20100101
  4. TRAMADOL (TRAMADOL) (50 MILLIGRAM, TABLETS) (TRAMADOL) [Concomitant]
  5. TRAZODONE (TRAZODONE) (TRAZODONE) [Concomitant]
  6. DARVON (PROPOXYPHENE) (PROPOXYPHENE) [Concomitant]
  7. VITAMIN C (VITAMIN C) (VITAMIN C) [Concomitant]
  8. SAVELLA [Suspect]
     Indication: OSTEOARTHRITIS
     Dosage: 50 MG (25 MG, 2 IN 1 D), ORAL
     Route: 048
     Dates: start: 20110406, end: 20110406
  9. FISH OIL (FISH OIL) (FISH OIL) [Concomitant]
  10. TYLENOL WITH CODEINE (PANADEINE CO) (PANADEINE CO) [Concomitant]
  11. HYDROCHLOROTHIAZIDE [Concomitant]
  12. NAPROXEN [Concomitant]
  13. CINNAMON (CINNAMON VERUM) (CINNAMON VERUM) [Concomitant]
  14. ATENOLOL [Concomitant]

REACTIONS (12)
  - PARAESTHESIA [None]
  - OEDEMA PERIPHERAL [None]
  - OEDEMA [None]
  - FEELING COLD [None]
  - INSOMNIA [None]
  - MUSCLE SPASMS [None]
  - DRUG INTERACTION [None]
  - FEELING HOT [None]
  - PARAESTHESIA ORAL [None]
  - PRURITUS [None]
  - RESTLESS LEGS SYNDROME [None]
  - AGITATION [None]
